FAERS Safety Report 8556621-8 (Version None)
Quarter: 2012Q3

REPORT INFORMATION
  Report Type: 
  Country: None (occurrence: None)
  Receive Date: 20120801
  Receipt Date: 20120730
  Transmission Date: 20120928
  Serious: Yes (Death)
  Sender: FDA-Public Use
  Company Number: AU-B.I. PHARMACEUTICALS,INC./RIDGEFIELD-2012-AU-01291AU

PATIENT
  Sex: Male
  Weight: 103 kg

DRUGS (8)
  1. PRADAXA [Suspect]
     Indication: ATRIAL FIBRILLATION
  2. PERINDOPRIL ERBUMINE [Concomitant]
     Dates: start: 20020101
  3. DILANTIN [Concomitant]
     Dates: start: 20090101
  4. PRAZOSIN [Concomitant]
     Dates: start: 20090101
  5. PRADAXA [Suspect]
     Indication: CEREBROVASCULAR ACCIDENT PROPHYLAXIS
     Dates: start: 20110929
  6. SOTALOL HYDROCHLORIDE [Concomitant]
     Dates: start: 20090101
  7. LASIX [Concomitant]
     Dates: start: 20090101
  8. CADUET [Concomitant]
     Dosage: 10/80
     Dates: start: 20090101

REACTIONS (1)
  - CEREBROVASCULAR ACCIDENT [None]
